FAERS Safety Report 9548647 (Version 1)
Quarter: 2013Q2

REPORT INFORMATION
  Report Type: Spontaneous
  Country: US (occurrence: None)
  Receive Date: 20130606
  Receipt Date: 20130606
  Transmission Date: 20140414
  Serious: Yes (Other)
  Sender: FDA-Public Use
  Company Number: 1303USA006926

PATIENT
  Sex: 0

DRUGS (1)
  1. ZIOPTAN [Suspect]
     Route: 047
     Dates: start: 201302

REACTIONS (5)
  - Rhinorrhoea [None]
  - Erythema [None]
  - Burning sensation [None]
  - Skin exfoliation [None]
  - Dysgeusia [None]
